FAERS Safety Report 9253024 (Version 1)
Quarter: 2013Q2

REPORT INFORMATION
  Report Type: Spontaneous
  Country: US (occurrence: US)
  Receive Date: 20130424
  Receipt Date: 20130424
  Transmission Date: 20140414
  Serious: Yes (Other)
  Sender: FDA-Public Use
  Company Number: US-PFIZER INC-2013127271

PATIENT
  Age: 21 Year
  Sex: Female

DRUGS (1)
  1. LYRICA [Suspect]
     Indication: TRIGEMINAL NEURALGIA
     Dosage: UNK
     Dates: start: 201304

REACTIONS (5)
  - Dystonia [Unknown]
  - Dysarthria [Unknown]
  - Tongue disorder [Unknown]
  - Musculoskeletal discomfort [Unknown]
  - Limb discomfort [Unknown]
